FAERS Safety Report 6369127-1 (Version None)
Quarter: 2009Q3

REPORT INFORMATION
  Report Type: 
  Country: None (occurrence: None)
  Receive Date: 20090917
  Receipt Date: 20090917
  Transmission Date: 20100115
  Serious: No
  Sender: FDA-Public Use
  Company Number: None

PATIENT
  Age: 80 Year
  Sex: Female
  Weight: 97.5 kg

DRUGS (1)
  1. AMIODARONE HCL [Suspect]
     Dosage: 200 MG TWICE DAILY PO
     Route: 048

REACTIONS (1)
  - LUNG INFILTRATION [None]
